FAERS Safety Report 17000694 (Version 1)
Quarter: 2019Q4

REPORT INFORMATION
  Report Type: Spontaneous
  Country: FR (occurrence: FR)
  Receive Date: 20191106
  Receipt Date: 20191106
  Transmission Date: 20200122
  Serious: Yes (Congenital Anomaly, Other)
  Sender: FDA-Public Use
  Company Number: FR-LUNDBECK-DKLU3006987

PATIENT
  Sex: Male

DRUGS (3)
  1. ACIDE FOLIQUE [Concomitant]
     Active Substance: FOLIC ACID
     Indication: PRODUCT USED FOR UNKNOWN INDICATION
     Route: 065
     Dates: start: 20020911, end: 20030523
  2. LAMOTRIGINE. [Suspect]
     Active Substance: LAMOTRIGINE
     Indication: EPILEPSY
     Route: 064
     Dates: start: 20020911, end: 20030523
  3. URBANYL [Suspect]
     Active Substance: CLOBAZAM
     Indication: EPILEPSY
     Route: 064
     Dates: start: 20020911, end: 20030523

REACTIONS (10)
  - Dysmorphism [Not Recovered/Not Resolved]
  - Psychomotor retardation [Not Recovered/Not Resolved]
  - Intellectual disability [Not Recovered/Not Resolved]
  - Dyspraxia [Not Recovered/Not Resolved]
  - Dyscalculia [Not Recovered/Not Resolved]
  - Attention deficit/hyperactivity disorder [Not Recovered/Not Resolved]
  - Foot deformity [Not Recovered/Not Resolved]
  - Cerebellar syndrome [Not Recovered/Not Resolved]
  - Language disorder [Not Recovered/Not Resolved]
  - Hypotonia [Not Recovered/Not Resolved]

NARRATIVE: CASE EVENT DATE: 20030523
